FAERS Safety Report 9472530 (Version 1)
Quarter: 2013Q3

REPORT INFORMATION
  Report Type: Spontaneous
  Country: US (occurrence: None)
  Receive Date: 20130821
  Receipt Date: 20130821
  Transmission Date: 20140515
  Serious: Yes (Other)
  Sender: FDA-Public Use
  Company Number: None

PATIENT
  Age: 38 Year
  Sex: Male

DRUGS (5)
  1. TECFIDERA [Suspect]
     Indication: MULTIPLE SCLEROSIS
     Route: 048
  2. LEXAPRO [Concomitant]
  3. BUSPAR [Concomitant]
  4. KLONOPIN [Concomitant]
  5. AZOR [Concomitant]

REACTIONS (5)
  - Upper respiratory tract infection [None]
  - Headache [None]
  - Epistaxis [None]
  - Flushing [None]
  - Gastrointestinal pain [None]
